FAERS Safety Report 6943472-0 (Version None)
Quarter: 2010Q3

REPORT INFORMATION
  Report Type: 
  Country: None (occurrence: None)
  Receive Date: 20100826
  Receipt Date: 20100816
  Transmission Date: 20110219
  Serious: Yes (Other)
  Sender: FDA-Public Use
  Company Number: US-PFIZER INC-2006105679

PATIENT
  Sex: Female
  Weight: 90.703 kg

DRUGS (27)
  1. CHANTIX [Interacting]
     Indication: SMOKING CESSATION THERAPY
     Dosage: UNK
     Route: 048
     Dates: start: 20060818
  2. CHANTIX [Interacting]
     Dosage: UNK
     Route: 048
     Dates: start: 20100101, end: 20100101
  3. ZYPREXA [Interacting]
     Dosage: UNK
  4. SYNTHROID [Suspect]
     Dosage: 25 MG, UNK
  5. SYNTHROID [Suspect]
     Dosage: UNK
  6. KLONOPIN [Concomitant]
     Indication: SLEEP DISORDER
     Dosage: 1 MG, 3X/DAY
  7. WELLBUTRIN [Concomitant]
     Indication: DEPRESSION
  8. PAXIL [Concomitant]
     Indication: DEPRESSION
  9. TRAZODONE HCL [Concomitant]
     Dosage: 150 MG, 1X/DAY
  10. SKELAXIN [Concomitant]
  11. DARVOCET [Concomitant]
     Indication: BACK DISORDER
     Dosage: 100 MG, AS NEEDED
  12. DARVOCET [Concomitant]
     Dosage: UNK
  13. ESTRACE [Concomitant]
     Dosage: 5 MG, 1X/DAY
  14. ESTRACE [Concomitant]
     Dosage: 0.5 MG, DAILY
     Route: 048
  15. AMITRIPTYLINE [Concomitant]
     Dosage: 15 MG, UNK
  16. NEURONTIN [Concomitant]
     Dosage: 600 MG, 2X/DAY
  17. PRILOSEC [Concomitant]
     Dosage: 20 MG, 2X/DAY
  18. FLEXERIL [Concomitant]
     Dosage: 0.5 MG, 2X/DAY
  19. FLEXERIL [Concomitant]
     Dosage: 10 MG, 2X/DAY
  20. MIRALAX [Concomitant]
     Indication: CONSTIPATION
     Dosage: 17 G, UNK
  21. SEROQUEL [Concomitant]
     Dosage: 25 MG, 2X/DAY
  22. SEROQUEL [Concomitant]
     Dosage: UNK, 2X/DAY
  23. TOPAMAX [Concomitant]
     Dosage: 100 MG, 2X/DAY
  24. TOPAMAX [Concomitant]
     Dosage: 125 MG, 2X/DAY
  25. MOBIC [Concomitant]
     Dosage: 15 MG, 1X/DAY
  26. VENLAFAXINE HYDROCHLORIDE [Concomitant]
     Dosage: 150 MG, 3X/DAY
  27. MELOXICAM [Concomitant]
     Dosage: 75 MG, 2X/DAY

REACTIONS (14)
  - ABNORMAL DREAMS [None]
  - ANGER [None]
  - CONSTIPATION [None]
  - DEPRESSION [None]
  - DRUG INTERACTION [None]
  - DRY MOUTH [None]
  - EMOTIONAL DISORDER [None]
  - INSOMNIA [None]
  - IRRITABILITY [None]
  - MEMORY IMPAIRMENT [None]
  - MOOD ALTERED [None]
  - RESTLESSNESS [None]
  - STRESS [None]
  - WEIGHT INCREASED [None]
